FAERS Safety Report 17188071 (Version 1)
Quarter: 2019Q4

REPORT INFORMATION
  Report Type: Spontaneous
  Country: GB (occurrence: GB)
  Receive Date: 20191221
  Receipt Date: 20191221
  Transmission Date: 20200122
  Serious: Yes (Other)
  Sender: FDA-Public Use
  Company Number: GB-ACCORD-165650

PATIENT
  Age: 53 Year
  Sex: Male
  Weight: 71 kg

DRUGS (7)
  1. EUMOVATE [Concomitant]
     Active Substance: CLOBETASONE BUTYRATE
     Dosage: APPLY
     Dates: start: 20191016, end: 20191113
  2. HYDROXYZINE [Concomitant]
     Active Substance: HYDROXYZINE HYDROCHLORIDE
     Dosage: 1-2 TO BE TAKEN EACH NIGHT
     Dates: start: 20191010, end: 20191107
  3. AMITRIPTYLINE [Suspect]
     Active Substance: AMITRIPTYLINE
     Indication: PRODUCT USED FOR UNKNOWN INDICATION
     Dosage: USE AS DIRECTED
     Dates: start: 20190703
  4. GABAPENTIN. [Concomitant]
     Active Substance: GABAPENTIN
     Dosage: 1 ON DAY 1, THEN TWICE A DAY, THEN THRICE A DAY, ADD 1 TABLET EVE
     Dates: start: 20191127
  5. ZOPICLONE [Concomitant]
     Active Substance: ZOPICLONE
     Dosage: AT NIGHT
     Dates: start: 20191016, end: 20191113
  6. LORATADINE. [Concomitant]
     Active Substance: LORATADINE
     Dosage: 3 EVERY DAY AND REDUCE TO 2 TWICE A DAY
     Dates: start: 20191007, end: 20191106
  7. CITALOPRAM [Concomitant]
     Active Substance: CITALOPRAM HYDROBROMIDE
     Dates: start: 20190703

REACTIONS (4)
  - Drug hypersensitivity [Unknown]
  - Rash [Unknown]
  - Lip oedema [Recovered/Resolved]
  - Headache [Unknown]

NARRATIVE: CASE EVENT DATE: 20191009
